FAERS Safety Report 6015178-6 (Version None)
Quarter: 2008Q4

REPORT INFORMATION
  Report Type: 
  Country: None (occurrence: None)
  Receive Date: 20081222
  Receipt Date: 20081211
  Transmission Date: 20090506
  Serious: Yes (Hospitalization)
  Sender: FDA-Public Use
  Company Number: CA-JNJFOC-20081203622

PATIENT
  Sex: Female
  Weight: 88 kg

DRUGS (11)
  1. REMICADE [Suspect]
     Route: 042
  2. REMICADE [Suspect]
     Indication: RHEUMATOID ARTHRITIS
     Route: 042
  3. NOVOQUININE [Concomitant]
  4. EFFEXOR XR [Concomitant]
     Dosage: 75 ^DIE^
  5. METHOTREXATE [Concomitant]
     Route: 048
  6. METFORMIN HCL [Concomitant]
  7. MACROBID [Concomitant]
  8. ATENOLOL [Concomitant]
  9. CELEBREX [Concomitant]
  10. SYNTHROID [Concomitant]
  11. CYCLOBENZAPRINE HCL [Concomitant]

REACTIONS (1)
  - FOOT OPERATION [None]
